FAERS Safety Report 5411607-7 (Version None)
Quarter: 2007Q3

REPORT INFORMATION
  Report Type: 
  Country: None (occurrence: None)
  Receive Date: 20070810
  Receipt Date: 20070731
  Transmission Date: 20080115
  Serious: Yes (Other)
  Sender: FDA-Public Use
  Company Number: US-PFIZER INC-2007063420

PATIENT
  Sex: Female
  Weight: 71.818 kg

DRUGS (10)
  1. DEPO-MEDROL [Suspect]
     Indication: BURSITIS
     Dosage: FREQ:ONCE
     Dates: start: 20070530, end: 20070530
  2. AZITHROMYCIN [Suspect]
     Indication: SINUSITIS
     Dosage: TEXT:ONE PILL
     Route: 048
     Dates: start: 20070601, end: 20070605
  3. PROTONIX [Suspect]
     Indication: FLATULENCE
     Dates: start: 20070701, end: 20070701
  4. PAXIL [Suspect]
     Indication: ANXIETY
     Dates: start: 20070101, end: 20070101
  5. PAXIL [Suspect]
     Indication: NERVOUSNESS
  6. CELEXA [Suspect]
     Indication: ANXIETY
     Dates: start: 20070101, end: 20070101
  7. CELEXA [Suspect]
     Indication: NERVOUSNESS
  8. IBUPROFEN [Concomitant]
  9. MOTRIN [Concomitant]
  10. ALL OTHER THERAPEUTIC PRODUCTS [Concomitant]

REACTIONS (18)
  - ABDOMINAL DISTENSION [None]
  - ANOREXIA [None]
  - ANXIETY [None]
  - DEHYDRATION [None]
  - DIZZINESS [None]
  - DRUG INTOLERANCE [None]
  - DYSPEPSIA [None]
  - DYSPNOEA [None]
  - FLATULENCE [None]
  - HELICOBACTER INFECTION [None]
  - HYPOAESTHESIA [None]
  - MALAISE [None]
  - NERVE COMPRESSION [None]
  - NIGHT SWEATS [None]
  - PALPITATIONS [None]
  - SINUSITIS [None]
  - TREMOR [None]
  - WEIGHT DECREASED [None]
